FAERS Safety Report 16298661 (Version 4)
Quarter: 2025Q3

REPORT INFORMATION
  Report Type: Spontaneous
  Country: EU (occurrence: EU)
  Receive Date: 20190510
  Receipt Date: 20250817
  Transmission Date: 20251020
  Serious: Yes (Other)
  Sender: AUROBINDO
  Company Number: None

PATIENT
  Age: 80 Year
  Sex: Male
  Weight: 85 kg

DRUGS (16)
  1. METFORMIN [Suspect]
     Active Substance: METFORMIN HYDROCHLORIDE
     Indication: Type 2 diabetes mellitus
     Route: 048
  2. METFORMIN [Suspect]
     Active Substance: METFORMIN HYDROCHLORIDE
     Route: 065
  3. METFORMIN [Suspect]
     Active Substance: METFORMIN HYDROCHLORIDE
     Dosage: 2000 MILLIGRAM, ONCE A DAY, 2X 1000MG
     Route: 065
  4. GLIQUIDONE [Suspect]
     Active Substance: GLIQUIDONE
     Indication: Type 2 diabetes mellitus
     Route: 065
  5. GLIQUIDONE [Suspect]
     Active Substance: GLIQUIDONE
     Indication: Diabetes mellitus
  6. INSULIN NOS [Suspect]
     Active Substance: INSULIN NOS
     Indication: Diabetes mellitus
     Route: 065
  7. INSULIN NOS [Suspect]
     Active Substance: INSULIN NOS
     Indication: Type 2 diabetes mellitus
     Route: 065
  8. ASPIRIN [Concomitant]
     Active Substance: ASPIRIN
     Indication: Hypertension
     Route: 065
  9. INSULIN HUMAN [Concomitant]
     Active Substance: INSULIN HUMAN
     Indication: Diabetes mellitus
     Route: 065
  10. BOPINDOLOL [Concomitant]
     Active Substance: BOPINDOLOL
     Indication: Hypertension
     Route: 065
  11. INDAPAMIDE\PERINDOPRIL [Concomitant]
     Active Substance: INDAPAMIDE\PERINDOPRIL
     Indication: Hypertension
     Route: 065
  12. RILMENIDINE [Concomitant]
     Active Substance: RILMENIDINE
     Indication: Hypertension
     Route: 065
  13. Amlodipine;Atorvastatin [Concomitant]
     Indication: Dyslipidaemia
     Route: 065
  14. Amlodipine;Atorvastatin [Concomitant]
     Indication: Hypertension
  15. BISOPROLOL [Concomitant]
     Active Substance: BISOPROLOL
     Indication: Hypertension
     Route: 065
  16. INSULIN GLARGINE [Concomitant]
     Active Substance: INSULIN GLARGINE
     Indication: Type 2 diabetes mellitus
     Route: 065

REACTIONS (4)
  - Diabetic metabolic decompensation [Recovering/Resolving]
  - Palpitations [Unknown]
  - Diabetes mellitus [Recovering/Resolving]
  - Glycosylated haemoglobin increased [Unknown]

NARRATIVE: CASE EVENT DATE: 20110101
